FAERS Safety Report 7536101-9 (Version None)
Quarter: 2011Q2

REPORT INFORMATION
  Report Type: 
  Country: None (occurrence: None)
  Receive Date: 20110609
  Receipt Date: 20110531
  Transmission Date: 20111010
  Serious: Yes (Other)
  Sender: FDA-Public Use
  Company Number: JP-AMGEN-JPNSP2011025620

PATIENT
  Age: 55 Year
  Sex: Female
  Weight: 48.4 kg

DRUGS (5)
  1. RINDERON                           /00008501/ [Concomitant]
     Dosage: UNK
  2. CINAL [Concomitant]
     Dosage: UNK
  3. ENBREL [Suspect]
     Indication: RHEUMATOID ARTHRITIS
     Dosage: 25 MG, 2X/WEEK
     Route: 058
     Dates: start: 20070101, end: 20101101
  4. SELBEX [Concomitant]
     Dosage: UNK
  5. ADONA                              /00056903/ [Concomitant]
     Dosage: UNK

REACTIONS (2)
  - FEELING ABNORMAL [None]
  - LEUKOCYTOCLASTIC VASCULITIS [None]
